FAERS Safety Report 11726799 (Version 1)
Quarter: 2015Q4

REPORT INFORMATION
  Report Type: Spontaneous
  Country: US (occurrence: US)
  Receive Date: 20151112
  Receipt Date: 20151112
  Transmission Date: 20160304
  Serious: Yes (Other)
  Sender: FDA-Public Use
  Company Number: US-ELI_LILLY_AND_COMPANY-US201511001392

PATIENT
  Sex: Male
  Weight: 91 kg

DRUGS (1)
  1. CYMBALTA [Suspect]
     Active Substance: DULOXETINE HYDROCHLORIDE
     Indication: NEURALGIA
     Dosage: UNK, UNKNOWN
     Route: 065
     Dates: start: 2008, end: 2008

REACTIONS (7)
  - Pain [Unknown]
  - Hallucination [Unknown]
  - Poisoning [Unknown]
  - Off label use [Unknown]
  - Abdominal discomfort [Unknown]
  - Decreased appetite [Unknown]
  - Nervousness [Unknown]
